FAERS Safety Report 10014996 (Version 1)
Quarter: 2014Q1

REPORT INFORMATION
  Report Type: Spontaneous
  Country: US (occurrence: US)
  Receive Date: 20140317
  Receipt Date: 20140317
  Transmission Date: 20141002
  Serious: Yes (Other)
  Sender: FDA-Public Use
  Company Number: US-JNJFOC-20140306227

PATIENT
  Age: 65 Year
  Sex: Male
  Weight: 95.26 kg

DRUGS (3)
  1. INVOKANA [Suspect]
     Indication: TYPE 2 DIABETES MELLITUS
     Route: 048
     Dates: start: 201401
  2. ANTIHYPERTENSIVE [Concomitant]
     Indication: HYPERTENSION
  3. DIABETES MEDICATION [Concomitant]
     Indication: DIABETES MELLITUS

REACTIONS (1)
  - Weight decreased [Not Recovered/Not Resolved]
